FAERS Safety Report 8347900-8 (Version None)
Quarter: 2012Q2

REPORT INFORMATION
  Report Type: 
  Country: None (occurrence: None)
  Receive Date: 20120509
  Receipt Date: 20120427
  Transmission Date: 20120825
  Serious: Yes (Other)
  Sender: FDA-Public Use
  Company Number: DE-BRISTOL-MYERS SQUIBB COMPANY-16558173

PATIENT

DRUGS (7)
  1. EMTRICITABINE [Suspect]
     Indication: ANTIRETROVIRAL THERAPY
  2. RITONAVIR [Suspect]
     Indication: ANTIRETROVIRAL THERAPY
  3. ZERIT [Suspect]
     Indication: ANTIRETROVIRAL THERAPY
  4. VIDEX [Suspect]
     Indication: ANTIRETROVIRAL THERAPY
  5. SUSTIVA [Suspect]
     Indication: ANTIRETROVIRAL THERAPY
  6. REYATAZ [Suspect]
     Indication: ANTIRETROVIRAL THERAPY
  7. TENOFOVIR DISOPROXIL FUMARATE [Suspect]
     Indication: ANTIRETROVIRAL THERAPY

REACTIONS (5)
  - HYPERBILIRUBINAEMIA [None]
  - PROTEINURIA [None]
  - NEPHROLITHIASIS [None]
  - GLOMERULAR FILTRATION RATE DECREASED [None]
  - BLOOD CREATININE INCREASED [None]
